FAERS Safety Report 4844165-6 (Version None)
Quarter: 2005Q4

REPORT INFORMATION
  Report Type: 
  Country: None (occurrence: None)
  Receive Date: 20051202
  Receipt Date: 20051115
  Transmission Date: 20060501
  Serious: Yes (Hospitalization)
  Sender: FDA-Public Use
  Company Number: 2005AP06001

PATIENT
  Age: 53 Year
  Sex: Female

DRUGS (4)
  1. IRESSA [Suspect]
     Indication: LUNG ADENOCARCINOMA
     Route: 048
     Dates: start: 20041001, end: 20051102
  2. RADIOTHERAPY [Suspect]
  3. DECADRON [Concomitant]
     Route: 048
     Dates: start: 20041001, end: 20051106
  4. LORAZEPAM [Concomitant]
     Route: 048
     Dates: start: 20041001, end: 20051106

REACTIONS (1)
  - LEUKOENCEPHALOPATHY [None]
